FAERS Safety Report 23605984 (Version 1)
Quarter: 2024Q1

REPORT INFORMATION
  Report Type: Spontaneous
  Country: US (occurrence: None)
  Receive Date: 20240307
  Receipt Date: 20240307
  Transmission Date: 20240409
  Serious: Yes (Hospitalization)
  Sender: FDA-Public Use
  Company Number: US-ROCHE-3519742

PATIENT
  Age: 14 Year
  Sex: Male

DRUGS (3)
  1. HEMLIBRA [Suspect]
     Active Substance: EMICIZUMAB-KXWH
     Indication: Factor VIII deficiency
     Dosage: STRENGTH: 60MG/0.4ML
     Route: 058
     Dates: start: 202109
  2. SEVENFACT [Concomitant]
     Active Substance: COAGULATION FACTOR VIIA RECOMBINANT HUMAN-JNCW
     Dosage: 5000U
  3. SEVENFACT [Concomitant]
     Active Substance: COAGULATION FACTOR VIIA RECOMBINANT HUMAN-JNCW
     Dosage: 1000U

REACTIONS (1)
  - Haemorrhage [Recovered/Resolved]

NARRATIVE: CASE EVENT DATE: 20240216
